FAERS Safety Report 4924995-2 (Version None)
Quarter: 2006Q1

REPORT INFORMATION
  Report Type: 
  Country: None (occurrence: None)
  Receive Date: 20060222
  Receipt Date: 20060210
  Transmission Date: 20060701
  Serious: Yes (Hospitalization, Other)
  Sender: FDA-Public Use
  Company Number: ST-2006-008871

PATIENT
  Age: 59 Year
  Sex: Male

DRUGS (5)
  1. OLMETEC [Suspect]
     Indication: HYPERTENSION
     Dosage: 20 MG QD PO
     Route: 048
     Dates: start: 20060111, end: 20060202
  2. NEORAL [Concomitant]
  3. CELLCEPT [Concomitant]
  4. URINORM [Concomitant]
  5. OMEPRAZOLE [Concomitant]

REACTIONS (2)
  - BLOOD CREATININE INCREASED [None]
  - URINE OUTPUT DECREASED [None]
